FAERS Safety Report 5393717-6 (Version None)
Quarter: 2007Q3

REPORT INFORMATION
  Report Type: 
  Country: None (occurrence: None)
  Receive Date: 20070719
  Receipt Date: 20070719
  Transmission Date: 20080115
  Serious: No
  Sender: FDA-Public Use
  Company Number: None

PATIENT
  Age: 76 Year
  Sex: Male

DRUGS (1)
  1. TAMSULOSIN HCL [Suspect]
     Dosage: 0.4MG EVERY DAY PO
     Route: 048
     Dates: start: 20070618

REACTIONS (1)
  - FLOPPY IRIS SYNDROME [None]
